FAERS Safety Report 7284888-5 (Version None)
Quarter: 2011Q1

REPORT INFORMATION
  Report Type: 
  Country: None (occurrence: None)
  Receive Date: 20110204
  Receipt Date: 20110204
  Transmission Date: 20110831
  Serious: Yes (Other)
  Sender: FDA-Public Use
  Company Number: None

PATIENT
  Age: 65 Year
  Sex: Female
  Weight: 63.6 kg

DRUGS (1)
  1. ALPRAZOLAM [Suspect]
     Indication: ANXIETY
     Dosage: ONE 1MG TABLET EVERY DAY 047

REACTIONS (5)
  - LIMB INJURY [None]
  - FALL [None]
  - AMNESIA [None]
  - SKELETAL INJURY [None]
  - BACK INJURY [None]
